FAERS Safety Report 25509037 (Version 3)
Quarter: 2025Q3

REPORT INFORMATION
  Report Type: Report from Study
  Country: US (occurrence: US)
  Receive Date: 20250703
  Receipt Date: 20250918
  Transmission Date: 20251021
  Serious: No
  Sender: SUNOVION
  Company Number: US-SUMITOMO PHARMA SWITZERLAND GMBH-2025SPA007340

PATIENT
  Age: 97 Year
  Sex: Male
  Weight: 78.018 kg

DRUGS (2)
  1. ORGOVYX [Suspect]
     Active Substance: RELUGOLIX
     Indication: Prostate cancer
     Route: 048
  2. ORGOVYX [Suspect]
     Active Substance: RELUGOLIX
     Dosage: 120 MG, QD
     Route: 048
     Dates: start: 20250428

REACTIONS (8)
  - Urinary incontinence [Unknown]
  - Blood pressure abnormal [Unknown]
  - Balance disorder [Unknown]
  - Nocturia [Unknown]
  - Walking aid user [Unknown]
  - Irritability [Unknown]
  - Hyperhidrosis [Unknown]
  - Hot flush [Unknown]
